FAERS Safety Report 5664134-6 (Version None)
Quarter: 2008Q1

REPORT INFORMATION
  Report Type: 
  Country: None (occurrence: None)
  Receive Date: 20080312
  Receipt Date: 20080226
  Transmission Date: 20080703
  Serious: Yes (Death, Hospitalization)
  Sender: FDA-Public Use
  Company Number: 2008000431

PATIENT
  Age: 65 Year
  Sex: Female

DRUGS (2)
  1. TARCEVA [Suspect]
     Indication: ADENOCARCINOMA PANCREAS
     Dosage: (100 MG, QD), ORAL
     Route: 048
  2. GEMCITABINE [Suspect]
     Indication: ADENOCARCINOMA PANCREAS
     Dosage: (1000 MG/KG)

REACTIONS (11)
  - BLOOD PRESSURE SYSTOLIC INCREASED [None]
  - DISORIENTATION [None]
  - DISTURBANCE IN SOCIAL BEHAVIOUR [None]
  - FALL [None]
  - FLAT AFFECT [None]
  - MALNUTRITION [None]
  - MENTAL STATUS CHANGES [None]
  - PERFORMANCE STATUS DECREASED [None]
  - RESPIRATORY FAILURE [None]
  - REVERSIBLE POSTERIOR LEUKOENCEPHALOPATHY SYNDROME [None]
  - SOMNOLENCE [None]
